FAERS Safety Report 10513160 (Version 2)
Quarter: 2015Q1

REPORT INFORMATION
  Report Type: Spontaneous
  Country: PT (occurrence: PT)
  Receive Date: 20141013
  Receipt Date: 20150304
  Transmission Date: 20150720
  Serious: Yes (Disabling)
  Sender: FDA-Public Use
  Company Number: PT-TEVA-512647ISR

PATIENT
  Age: 70 Year
  Sex: Female
  Weight: 68 kg

DRUGS (13)
  1. MEMANTINA TEVA 10MG [Suspect]
     Active Substance: MEMANTINE
     Indication: DEMENTIA ALZHEIMER^S TYPE
     Dosage: 10 MILLIGRAM DAILY; FIRST USE
     Route: 048
     Dates: start: 20140905
  2. METFORMINA GENERIS 500 MG COMPRIMIDOS REVESTIDOS [Concomitant]
     Indication: TYPE 2 DIABETES MELLITUS
     Dosage: 500 MILLIGRAM DAILY; AT NIGHT
     Route: 048
  3. ACTONEL [Concomitant]
     Active Substance: RISEDRONATE SODIUM
  4. STALEVO [Suspect]
     Active Substance: CARBIDOPA\ENTACAPONE\LEVODOPA
     Dosage: 2 DOSAGE FORMS DAILY;
     Route: 048
     Dates: start: 20140905, end: 20140918
  5. RIVOTRIL [Suspect]
     Active Substance: CLONAZEPAM
     Indication: SLEEP DISORDER
     Dosage: 1 MILLIGRAM DAILY;
     Route: 048
     Dates: start: 20140826
  6. LOSEC [Concomitant]
     Active Substance: OMEPRAZOLE
     Dosage: 20 MILLIGRAM DAILY;
     Route: 048
  7. ROPINIROL TEVA 8MG [Suspect]
     Active Substance: ROPINIROLE
     Indication: PARKINSON^S DISEASE
     Dosage: 8 MILLIGRAM DAILY; DOSE WAS REDUCED AND THEN INCREASED TO 2 TABLETS A DAY.
     Route: 048
     Dates: start: 20140827
  8. SINVASTATINA [Concomitant]
     Active Substance: SIMVASTATIN
     Indication: HYPERCHOLESTEROLAEMIA
     Dosage: 20 MILLIGRAM DAILY;
     Route: 048
  9. STALEVO [Suspect]
     Active Substance: CARBIDOPA\ENTACAPONE\LEVODOPA
     Indication: PROGRESSIVE SUPRANUCLEAR PALSY
     Dosage: 1 DOSAGE FORMS DAILY; IN THE MORNING
     Route: 048
  10. PRETERAX [Concomitant]
     Active Substance: INDAPAMIDE\PERINDOPRIL
     Indication: HYPERTENSION
     Dosage: 1 DOSAGE FORMS DAILY;
     Route: 048
  11. ROPINIROL TEVA 8MG [Suspect]
     Active Substance: ROPINIROLE
     Dosage: 2 TABLET DAILY;
     Route: 048
  12. EUCREAS [Concomitant]
     Active Substance: METFORMIN HYDROCHLORIDE\VILDAGLIPTIN
     Indication: TYPE 2 DIABETES MELLITUS
     Dosage: 900 MILLIGRAM DAILY; IN THE MORNING
     Route: 048
  13. GENEXIN [Concomitant]
     Indication: DEPRESSION
     Dosage: 150 MILLIGRAM DAILY;
     Route: 048

REACTIONS (4)
  - Abasia [Not Recovered/Not Resolved]
  - Apathy [Recovered/Resolved]
  - Aphasia [Not Recovered/Not Resolved]
  - Asthenia [Recovered/Resolved]

NARRATIVE: CASE EVENT DATE: 20140906
